FAERS Safety Report 16833696 (Version 1)
Quarter: 2019Q3

REPORT INFORMATION
  Report Type: Report from Study
  Country: US (occurrence: US)
  Receive Date: 20190920
  Receipt Date: 20190920
  Transmission Date: 20191005
  Serious: Yes (Death, Other)
  Sender: FDA-Public Use
  Company Number: US-GILEAD-2019-0429399

PATIENT
  Age: 79 Year
  Sex: Male

DRUGS (7)
  1. ENALAPRIL [Concomitant]
     Active Substance: ENALAPRIL
  2. SILDENAFIL. [Concomitant]
     Active Substance: SILDENAFIL
  3. METOPROLOL. [Concomitant]
     Active Substance: METOPROLOL
  4. SIMVASTATIN. [Concomitant]
     Active Substance: SIMVASTATIN
  5. CLOPIDOGREL [Concomitant]
     Active Substance: CLOPIDOGREL BISULFATE
  6. AMBRISENTAN [Suspect]
     Active Substance: AMBRISENTAN
     Indication: PRODUCT USED FOR UNKNOWN INDICATION
     Dosage: 10 MG
     Route: 065
  7. MIRALAX [Concomitant]
     Active Substance: POLYETHYLENE GLYCOL 3350

REACTIONS (1)
  - Death [Fatal]

NARRATIVE: CASE EVENT DATE: 20190813
